FAERS Safety Report 13903872 (Version 2)
Quarter: 2017Q3

REPORT INFORMATION
  Report Type: Spontaneous
  Country: JP (occurrence: JP)
  Receive Date: 20170824
  Receipt Date: 20170914
  Transmission Date: 20171127
  Serious: Yes (Death, Other)
  Sender: FDA-Public Use
  Company Number: JP-SEATTLE GENETICS-2017SGN01996

PATIENT
  Age: 78 Year
  Sex: Male
  Weight: 31.1 kg

DRUGS (9)
  1. ADCETRIS [Suspect]
     Active Substance: BRENTUXIMAB VEDOTIN
     Indication: HODGKIN^S DISEASE
     Dosage: 60 MG, Q21D
     Route: 041
     Dates: start: 20170425, end: 20170627
  2. FLUCONAZOLE. [Concomitant]
     Active Substance: FLUCONAZOLE
     Dosage: 200 MG, QD
     Route: 048
     Dates: start: 20170324, end: 201708
  3. MAGNESIUM OXIDE. [Concomitant]
     Active Substance: MAGNESIUM OXIDE
     Dosage: 330 MG, TID
     Route: 048
     Dates: start: 20170428, end: 201708
  4. PANTETHINE [Concomitant]
     Active Substance: PANTETHINE
     Dosage: 100 MG, TID
     Route: 048
     Dates: start: 20170428, end: 201708
  5. FLUTICASONE FUROATE, VILANTEROL TRIFENATATE [Concomitant]
     Dosage: 100 UG, QD
     Route: 050
     Dates: start: 20170606, end: 201708
  6. VONOPRAZAN FUMARATE [Concomitant]
     Active Substance: VONOPRAZAN FUMURATE
     Dosage: 10 MG, QD
     Route: 048
     Dates: start: 20170421, end: 201708
  7. ACICLOVIR [Concomitant]
     Active Substance: ACYCLOVIR
     Dosage: 200 MG, QD
     Route: 048
     Dates: start: 20170421, end: 201708
  8. SULFAMETHOXAZOLE, TRIMETHOPRIM [Concomitant]
     Active Substance: SULFAMETHOXAZOLE\TRIMETHOPRIM
     Dosage: 1 DF, QD
     Route: 048
     Dates: start: 20170324, end: 201708
  9. PROCATEROL HYDROCHLORIDE [Concomitant]
     Active Substance: PROCATEROL HYDROCHLORIDE
     Dosage: 20 UG, UNK
     Route: 065
     Dates: start: 20170627, end: 201708

REACTIONS (2)
  - Cardio-respiratory arrest [Not Recovered/Not Resolved]
  - Hypercapnia [Fatal]

NARRATIVE: CASE EVENT DATE: 201708
